FAERS Safety Report 7073024-6 (Version None)
Quarter: 2010Q4

REPORT INFORMATION
  Report Type: 
  Country: None (occurrence: None)
  Receive Date: 20101029
  Receipt Date: 20100423
  Transmission Date: 20110411
  Serious: No
  Sender: FDA-Public Use
  Company Number: A0854628A

PATIENT
  Age: 56 Year
  Sex: Female

DRUGS (7)
  1. ADVAIR DISKUS 100/50 [Suspect]
     Indication: BRONCHITIS
     Dosage: 1PUFF TWICE PER DAY
     Route: 055
     Dates: start: 20100112
  2. PROTONIX [Concomitant]
  3. BACLOFEN [Concomitant]
  4. PLAQUENIL [Concomitant]
  5. POTASSIUM CHLORIDE [Concomitant]
  6. KLONOPIN [Concomitant]
  7. MULTIPLE MEDICATION [Concomitant]

REACTIONS (3)
  - COUGH [None]
  - DRUG INEFFECTIVE [None]
  - PRODUCT QUALITY ISSUE [None]
